FAERS Safety Report 18936099 (Version 1)
Quarter: 2021Q1

REPORT INFORMATION
  Report Type: Spontaneous
  Country: US (occurrence: US)
  Receive Date: 20210224
  Receipt Date: 20210224
  Transmission Date: 20210420
  Serious: No
  Sender: FDA-Public Use
  Company Number: US-TERSERA THERAPEUTICS LLC-2020TRS002375

PATIENT

DRUGS (3)
  1. DILAUDID [Suspect]
     Active Substance: HYDROMORPHONE HYDROCHLORIDE
     Indication: PRODUCT USED FOR UNKNOWN INDICATION
     Dosage: 1.399 MG, QD, (0.058 MG/HR)
     Route: 037
  2. PRIALT [Suspect]
     Active Substance: ZICONOTIDE ACETATE
     Indication: PRODUCT USED FOR UNKNOWN INDICATION
     Dosage: 0.4371 MCG, QD (CONCENTRATION: 5.0 MCG/ML), (0.0182 MCG/HR)
     Route: 037
  3. BUPIVICAINE [Suspect]
     Active Substance: BUPIVACAINE
     Indication: PRODUCT USED FOR UNKNOWN INDICATION
     Dosage: 1.748 MG, QD ,(0.073 MG/HR)
     Route: 037

REACTIONS (2)
  - Off label use [Unknown]
  - Catheter site granuloma [Unknown]

NARRATIVE: CASE EVENT DATE: 20200803
